FAERS Safety Report 21268458 (Version 1)
Quarter: 2022Q3

REPORT INFORMATION
  Report Type: Spontaneous
  Country: JP (occurrence: JP)
  Receive Date: 20220830
  Receipt Date: 20220830
  Transmission Date: 20221027
  Serious: Yes (Hospitalization, Other)
  Sender: FDA-Public Use
  Company Number: JP-PFIZER INC-PV202200048485

PATIENT
  Sex: Female

DRUGS (2)
  1. ENBREL [Suspect]
     Active Substance: ETANERCEPT
     Indication: Rheumatoid arthritis
     Dosage: 50 MG
     Route: 058
  2. ENBREL [Suspect]
     Active Substance: ETANERCEPT
     Dosage: 25 MG
     Route: 058

REACTIONS (10)
  - Aortic stent insertion [Unknown]
  - Interstitial lung disease [Unknown]
  - Heart valve operation [Unknown]
  - Hip surgery [Unknown]
  - Pain [Unknown]
  - Bone disorder [Unknown]
  - Weight decreased [Unknown]
  - Therapeutic response decreased [Unknown]
  - Malaise [Unknown]
  - Arthralgia [Unknown]
